FAERS Safety Report 6191326-2 (Version None)
Quarter: 2009Q2

REPORT INFORMATION
  Report Type: 
  Country: None (occurrence: None)
  Receive Date: 20090513
  Receipt Date: 20090513
  Transmission Date: 20091009
  Serious: Yes (Other)
  Sender: FDA-Public Use
  Company Number: None

PATIENT
  Age: 52 Year
  Sex: Male
  Weight: 122.4712 kg

DRUGS (1)
  1. SEROQUEL [Suspect]
     Indication: SCHIZOPHRENIA
     Dosage: 800 MG (DAILY)
     Dates: start: 20081103

REACTIONS (4)
  - DIZZINESS [None]
  - DYSKINESIA [None]
  - MUSCLE SPASMS [None]
  - PRESYNCOPE [None]
